APPROVED DRUG PRODUCT: SELENIOUS ACID
Active Ingredient: SELENIOUS ACID
Strength: EQ 600MCG SELENIUM/10ML (EQ 60MCG SELENIUM/ML)
Dosage Form/Route: SOLUTION;INTRAVENOUS
Application: N209379 | Product #001 | TE Code: AP
Applicant: AMERICAN REGENT INC
Approved: Apr 30, 2019 | RLD: Yes | RS: Yes | Type: RX

PATENTS:
Patent 12150957 | Expires: Jul 1, 2041
Patent 11998565 | Expires: Jul 1, 2041